FAERS Safety Report 21078974 (Version 1)
Quarter: 2022Q3

REPORT INFORMATION
  Report Type: Spontaneous
  Country: BR (occurrence: BR)
  Receive Date: 20220713
  Receipt Date: 20220713
  Transmission Date: 20221027
  Serious: Yes (Hospitalization)
  Sender: FDA-Public Use
  Company Number: BR-GE HEALTHCARE-2022CSU004739

PATIENT
  Age: 5 Month
  Sex: Female
  Weight: 6.11 kg

DRUGS (2)
  1. OMNIPAQUE [Suspect]
     Active Substance: IOHEXOL
     Indication: Cystogram
     Dosage: UNK UNK, SINGLE
     Route: 067
     Dates: start: 20191025, end: 20191025
  2. OMNIPAQUE [Suspect]
     Active Substance: IOHEXOL
     Indication: Abdominal distension

REACTIONS (2)
  - Extravasation [Unknown]
  - Product administration error [Recovered/Resolved]

NARRATIVE: CASE EVENT DATE: 20191025
